FAERS Safety Report 19272329 (Version 2)
Quarter: 2021Q2

REPORT INFORMATION
  Report Type: Report from Study
  Country: US (occurrence: US)
  Receive Date: 20210519
  Receipt Date: 20210531
  Transmission Date: 20210717
  Serious: Yes (Other)
  Sender: FDA-Public Use
  Company Number: US-BIOGEN-2021BI00997106

PATIENT
  Sex: Female

DRUGS (5)
  1. FEMYNOR [Concomitant]
     Active Substance: ETHINYL ESTRADIOL\NORGESTIMATE
     Indication: PRODUCT USED FOR UNKNOWN INDICATION
     Route: 065
  2. VITAMIN K [Concomitant]
     Active Substance: PHYTONADIONE
     Indication: PRODUCT USED FOR UNKNOWN INDICATION
     Route: 065
  3. TECFIDERA [Suspect]
     Active Substance: DIMETHYL FUMARATE
     Indication: MULTIPLE SCLEROSIS
     Dosage: MAINTENANCE DOSE
     Route: 048
     Dates: start: 20170105
  4. TECFIDERA [Suspect]
     Active Substance: DIMETHYL FUMARATE
     Dosage: MAINTENANCE DOSE
     Route: 048
     Dates: start: 20171031
  5. PFIZER?BIONTECH COVID?19 VACCINE [Concomitant]
     Active Substance: TOZINAMERAN
     Indication: COVID-19 PROPHYLAXIS
     Route: 065

REACTIONS (14)
  - Fatigue [Not Recovered/Not Resolved]
  - Drug ineffective [Unknown]
  - Headache [Unknown]
  - Flushing [Not Recovered/Not Resolved]
  - Skin disorder [Not Recovered/Not Resolved]
  - Musculoskeletal stiffness [Unknown]
  - Product dose omission issue [Unknown]
  - Visual impairment [Unknown]
  - Alopecia [Not Recovered/Not Resolved]
  - Muscle spasticity [Unknown]
  - Nasopharyngitis [Not Recovered/Not Resolved]
  - Paraesthesia [Unknown]
  - Vomiting [Unknown]
  - Blindness [Unknown]
